FAERS Safety Report 10920204 (Version 1)
Quarter: 2015Q1

REPORT INFORMATION
  Report Type: Report from Study
  Country: US (occurrence: US)
  Receive Date: 20150317
  Receipt Date: 20150317
  Transmission Date: 20150721
  Serious: Yes (Other)
  Sender: FDA-Public Use
  Company Number: US-ALEXION PHARMACEUTICALS INC-A201500829

PATIENT

DRUGS (1)
  1. SOLIRIS [Suspect]
     Active Substance: ECULIZUMAB
     Indication: HAEMOLYTIC URAEMIC SYNDROME
     Dosage: 900 MG, QW
     Route: 042
     Dates: start: 201501

REACTIONS (4)
  - Hypertension [Not Recovered/Not Resolved]
  - Blood creatine increased [Unknown]
  - Fluid overload [Not Recovered/Not Resolved]
  - Incorrect dose administered [Not Recovered/Not Resolved]
